FAERS Safety Report 20583590 (Version 1)
Quarter: 2022Q1

REPORT INFORMATION
  Report Type: Spontaneous
  Country: US (occurrence: None)
  Receive Date: 20220311
  Receipt Date: 20220311
  Transmission Date: 20220423
  Serious: Yes (Hospitalization)
  Sender: FDA-Public Use
  Company Number: None

PATIENT
  Sex: Female

DRUGS (1)
  1. DEXAMETHASONE [Suspect]
     Active Substance: DEXAMETHASONE
     Indication: Mucopolysaccharidosis IV
     Dosage: 4MG  ORAL? TAKE 1 TABLET (4MG) BY MOUTH 30 TO 60 MINUTES PRIOR TO THE INFUSION
     Route: 048
     Dates: start: 202004

REACTIONS (1)
  - Sialoadenitis [None]
